FAERS Safety Report 15508633 (Version 5)
Quarter: 2019Q1

REPORT INFORMATION
  Report Type: Spontaneous
  Country: US (occurrence: US)
  Receive Date: 20181016
  Receipt Date: 20190305
  Transmission Date: 20190417
  Serious: Yes (Death)
  Sender: FDA-Public Use
  Company Number: US-ACTELION-A-NJ2018-180239

PATIENT
  Age: 66 Year
  Sex: Female
  Weight: 42.63 kg

DRUGS (1)
  1. UPTRAVI [Suspect]
     Active Substance: SELEXIPAG
     Indication: PULMONARY ARTERIAL HYPERTENSION
     Dosage: 800 MCG, BID
     Route: 048

REACTIONS (10)
  - Headache [Unknown]
  - Vomiting [Unknown]
  - Bedridden [Unknown]
  - Death [Fatal]
  - Decreased appetite [Unknown]
  - Eating disorder [Unknown]
  - Speech disorder [Unknown]
  - Flushing [Unknown]
  - Asthenia [Unknown]
  - Product dose omission [Unknown]

NARRATIVE: CASE EVENT DATE: 201809
